FAERS Safety Report 24673749 (Version 1)
Quarter: 2024Q4

REPORT INFORMATION
  Report Type: Spontaneous
  Country: AR (occurrence: AR)
  Receive Date: 20241128
  Receipt Date: 20241128
  Transmission Date: 20250115
  Serious: Yes (Other)
  Sender: SANDOZ
  Company Number: AR-002147023-NVSC2020AR259042

PATIENT
  Age: 7 Year
  Sex: Male
  Weight: 49 kg

DRUGS (2)
  1. OMNITROPE [Suspect]
     Active Substance: SOMATROPIN
     Indication: Growth hormone deficiency
     Dosage: 0.9 MG, QD
     Route: 058
  2. OMNITROPE [Suspect]
     Active Substance: SOMATROPIN
     Indication: Growth retardation
     Dosage: 1.2 MG, QD
     Route: 058
     Dates: start: 20200825

REACTIONS (3)
  - Osteomalacia [Unknown]
  - Headache [Recovering/Resolving]
  - Oedema peripheral [Recovering/Resolving]

NARRATIVE: CASE EVENT DATE: 20200913
